FAERS Safety Report 8225387-3 (Version None)
Quarter: 2012Q1

REPORT INFORMATION
  Report Type: 
  Country: None (occurrence: None)
  Receive Date: 20120321
  Receipt Date: 20120312
  Transmission Date: 20120608
  Serious: Yes (Death)
  Sender: FDA-Public Use
  Company Number: CA-ELI_LILLY_AND_COMPANY-CA201203003334

PATIENT
  Age: 99 Year
  Sex: Female

DRUGS (8)
  1. RAMIPRIL [Concomitant]
     Dosage: 7.5 MG, QD
     Route: 048
  2. VITAMIN D [Concomitant]
     Dosage: 1000 IU, BID
  3. SIMVASTATIN [Concomitant]
     Dosage: 40 MG, QD
  4. ENTROPHEN [Concomitant]
     Dosage: 325 MG, QD
  5. FORTEO [Suspect]
     Indication: OSTEOPOROSIS
     Dosage: 20 UG, QD
     Route: 058
     Dates: start: 20110625
  6. APO-TRIAZIDE [Concomitant]
     Dosage: 50 MG, QD
  7. ACEBUTOLOL HCL [Concomitant]
     Dosage: UNK, UNKNOWN
  8. HALIBUT LIVER OIL                  /00645501/ [Concomitant]
     Dosage: UNK, QD

REACTIONS (1)
  - MYOCARDIAL INFARCTION [None]
